FAERS Safety Report 17116328 (Version 1)
Quarter: 2019Q4

REPORT INFORMATION
  Report Type: Spontaneous
  Country: US (occurrence: US)
  Receive Date: 20191205
  Receipt Date: 20191205
  Transmission Date: 20200122
  Serious: No
  Sender: FDA-Public Use
  Company Number: US-THROMBOGENICS INC-US-O18021-19-000962

PATIENT

DRUGS (1)
  1. JETREA [Suspect]
     Active Substance: OCRIPLASMIN
     Indication: VITREOUS ADHESIONS
     Dosage: 1.25 MILLIGRAM, SINGLE
     Route: 031
     Dates: start: 20190718, end: 20190718

REACTIONS (3)
  - Colour blindness [Recovering/Resolving]
  - Visual impairment [Recovering/Resolving]
  - Vision blurred [Not Recovered/Not Resolved]

NARRATIVE: CASE EVENT DATE: 20190719
